FAERS Safety Report 5837599-4 (Version None)
Quarter: 2008Q3

REPORT INFORMATION
  Report Type: 
  Country: None (occurrence: None)
  Receive Date: 20080807
  Receipt Date: 20080730
  Transmission Date: 20090109
  Serious: Yes (Other)
  Sender: FDA-Public Use
  Company Number: PHHY2008CO16263

PATIENT
  Sex: Female

DRUGS (3)
  1. COMBAREN [Suspect]
     Indication: BACK PAIN
     Dosage: 50/ 50 MG TWICE A DAY
     Route: 048
     Dates: start: 20080715, end: 20080718
  2. IBUPROFEN TABLETS [Concomitant]
  3. METHOCARBAMOL [Concomitant]

REACTIONS (3)
  - DYSARTHRIA [None]
  - HEADACHE [None]
  - HEMIPARESIS [None]
